FAERS Safety Report 8506267-2 (Version None)
Quarter: 2012Q3

REPORT INFORMATION
  Report Type: 
  Country: None (occurrence: None)
  Receive Date: 20120712
  Receipt Date: 20120705
  Transmission Date: 20120928
  Serious: Yes (Other)
  Sender: FDA-Public Use
  Company Number: US-ASTRAZENECA-2012SE25696

PATIENT
  Age: 44 Year
  Sex: Male

DRUGS (1)
  1. SEROQUEL XR [Suspect]
     Indication: SLEEP DISORDER
     Route: 048

REACTIONS (8)
  - SOMNOLENCE [None]
  - INTENTIONAL DRUG MISUSE [None]
  - DRUG DOSE OMISSION [None]
  - INCREASED APPETITE [None]
  - INTERVERTEBRAL DISC PROTRUSION [None]
  - ACCIDENT [None]
  - WEIGHT INCREASED [None]
  - OFF LABEL USE [None]
